FAERS Safety Report 12042578 (Version 3)
Quarter: 2016Q3

REPORT INFORMATION
  Report Type: Spontaneous
  Country: US (occurrence: US)
  Receive Date: 20160208
  Receipt Date: 20160804
  Transmission Date: 20161109
  Serious: Yes (Hospitalization, Disabling, Other)
  Sender: FDA-Public Use
  Company Number: US-009507513-1602USA002126

PATIENT
  Sex: Female
  Weight: 76.64 kg

DRUGS (2)
  1. FOSAMAX [Suspect]
     Active Substance: ALENDRONATE SODIUM
     Indication: OSTEOPOROSIS
     Dosage: 10 MG, QD
     Route: 048
     Dates: start: 19990622
  2. ALENDRONATE SODIUM. [Suspect]
     Active Substance: ALENDRONATE SODIUM
     Indication: OSTEOPOROSIS
     Dosage: 10 MG, UNK
     Route: 048
     Dates: start: 20080604, end: 20140113

REACTIONS (17)
  - Femur fracture [Recovered/Resolved]
  - Femur fracture [Not Recovered/Not Resolved]
  - Tonsillectomy [Unknown]
  - Sinus operation [Unknown]
  - Hypercholesterolaemia [Unknown]
  - Hypothyroidism [Unknown]
  - Adverse event [Unknown]
  - Bone disorder [Unknown]
  - Osteoarthritis [Not Recovered/Not Resolved]
  - Rotator cuff syndrome [Recovered/Resolved]
  - Fracture [Unknown]
  - Erythema [Unknown]
  - Fracture [Not Recovered/Not Resolved]
  - Gastrooesophageal reflux disease [Unknown]
  - Low turnover osteopathy [Not Recovered/Not Resolved]
  - Appendicectomy [Unknown]
  - Tooth disorder [Unknown]

NARRATIVE: CASE EVENT DATE: 20010420
